FAERS Safety Report 12465662 (Version 2)
Quarter: 2017Q1

REPORT INFORMATION
  Report Type: Report from Study
  Country: None (occurrence: BR)
  Receive Date: 20160614
  Receipt Date: 20170117
  Transmission Date: 20170428
  Serious: Yes (Other)
  Sender: FDA-Public Use
  Company Number: BR-ABBVIE-16P-020-1651843-00

PATIENT
  Age: 33 Year
  Sex: Female
  Weight: 60 kg

DRUGS (1)
  1. LIPIDIL [Suspect]
     Active Substance: FENOFIBRATE
     Indication: BLOOD TRIGLYCERIDES INCREASED
     Dosage: 160MG AT IGHT
     Route: 048
     Dates: start: 201509, end: 201601

REACTIONS (2)
  - Hodgkin^s disease [Unknown]
  - Malaise [Unknown]

NARRATIVE: CASE EVENT DATE: 201601
